FAERS Safety Report 20164753 (Version 1)
Quarter: 2021Q4

REPORT INFORMATION
  Report Type: Report from Study
  Country: AR (occurrence: AR)
  Receive Date: 20211209
  Receipt Date: 20211209
  Transmission Date: 20220303
  Serious: Yes (Other)
  Sender: FDA-Public Use
  Company Number: AR-AMGEN-ARGSL2021192262

PATIENT
  Sex: Female

DRUGS (1)
  1. PROLIA [Suspect]
     Active Substance: DENOSUMAB
     Indication: Osteoporosis
     Dosage: UNK, Q6MO
     Route: 065
     Dates: start: 20141028

REACTIONS (1)
  - Stomatitis necrotising [Unknown]
